FAERS Safety Report 22181743 (Version 1)
Quarter: 2023Q2

REPORT INFORMATION
  Report Type: Spontaneous
  Country: US (occurrence: US)
  Receive Date: 20230406
  Receipt Date: 20230406
  Transmission Date: 20230721
  Serious: No
  Sender: FDA-Public Use
  Company Number: US-AMNEAL PHARMACEUTICALS-2022-AMRX-04057

PATIENT
  Sex: Female
  Weight: 81.65 kg

DRUGS (2)
  1. LEVOTHYROXINE SODIUM [Suspect]
     Active Substance: LEVOTHYROXINE SODIUM
     Indication: Product used for unknown indication
     Dosage: 88 MCG-ALTERNATES EVERY OTHER DAY BETWEEN 100MCG AND 88MCG
     Route: 065
  2. LEVOTHYROXINE SODIUM [Suspect]
     Active Substance: LEVOTHYROXINE SODIUM
     Dosage: 100 MCG-ALTERNATES EVERY OTHER DAY BETWEEN 100MCG AND 88MCG
     Route: 065

REACTIONS (11)
  - Feeling jittery [Unknown]
  - Pain in extremity [Unknown]
  - Brain fog [Unknown]
  - Pain [Unknown]
  - Mood altered [Unknown]
  - Product substitution issue [Unknown]
  - Irritability [Unknown]
  - Tremor [Unknown]
  - Psychomotor hyperactivity [Unknown]
  - Asthenia [Unknown]
  - Lethargy [Unknown]
